FAERS Safety Report 16288001 (Version 1)
Quarter: 2019Q2

REPORT INFORMATION
  Report Type: Spontaneous
  Country: US (occurrence: US)
  Receive Date: 20190508
  Receipt Date: 20190508
  Transmission Date: 20190711
  Serious: Yes (Hospitalization, Other)
  Sender: FDA-Public Use
  Company Number: US-REGENERON PHARMACEUTICALS, INC.-2019-30258

PATIENT

DRUGS (2)
  1. LIBTAYO [Suspect]
     Active Substance: CEMIPLIMAB-RWLC
     Indication: NEOPLASM SKIN
     Dosage: UNK
     Dates: start: 20190313, end: 20190313
  2. LIBTAYO [Suspect]
     Active Substance: CEMIPLIMAB-RWLC
     Dosage: 350 MG, Q3W, LAST DOSE
     Dates: start: 20190403, end: 20190403

REACTIONS (14)
  - Paranoia [Not Recovered/Not Resolved]
  - Vomiting [Unknown]
  - Dementia [Unknown]
  - Joint swelling [Unknown]
  - Pyrexia [Unknown]
  - Thinking abnormal [Unknown]
  - Urinary tract infection [Recovered/Resolved]
  - Agitation [Unknown]
  - Nausea [Unknown]
  - Suspiciousness [Not Recovered/Not Resolved]
  - Peripheral swelling [Unknown]
  - Weight decreased [Unknown]
  - Hallucination [Recovering/Resolving]
  - Delusion [Not Recovered/Not Resolved]

NARRATIVE: CASE EVENT DATE: 201904
